FAERS Safety Report 5242766-7 (Version None)
Quarter: 2007Q1

REPORT INFORMATION
  Report Type: 
  Country: None (occurrence: None)
  Receive Date: 20070221
  Receipt Date: 20070212
  Transmission Date: 20070707
  Serious: Yes (Death)
  Sender: FDA-Public Use
  Company Number: US-JNJFOC-20070203055

PATIENT
  Sex: Male

DRUGS (11)
  1. PALIPERIDONE [Suspect]
  2. PALIPERIDONE [Suspect]
     Indication: BIPOLAR I DISORDER
  3. PROSCAR [Concomitant]
     Indication: PROSTATE EXAMINATION ABNORMAL
  4. CIALIS [Concomitant]
     Indication: ERECTILE DYSFUNCTION
  5. CARDURA [Concomitant]
     Indication: PROSTATE EXAMINATION ABNORMAL
  6. FAMOTIDINE [Concomitant]
     Indication: HYPERCHLORHYDRIA
  7. CELEBREX [Concomitant]
     Indication: PAIN
  8. METFORMIN HCL [Concomitant]
  9. METFORMIN HCL [Concomitant]
  10. DUTASTERIDE [Concomitant]
     Indication: PROSTATE EXAMINATION ABNORMAL
  11. AMBIEN [Concomitant]

REACTIONS (1)
  - DEATH [None]
